FAERS Safety Report 16690462 (Version 2)
Quarter: 2019Q3

REPORT INFORMATION
  Report Type: Spontaneous
  Country: US (occurrence: US)
  Receive Date: 20190810
  Receipt Date: 20190814
  Transmission Date: 20191004
  Serious: No
  Sender: FDA-Public Use
  Company Number: PHEH2019US032687

PATIENT
  Sex: Female

DRUGS (1)
  1. CIPRODEX [Suspect]
     Active Substance: CIPROFLOXACIN HYDROCHLORIDE\DEXAMETHASONE
     Route: 065
     Dates: start: 20190517, end: 20190531

REACTIONS (6)
  - Hypoaesthesia [Unknown]
  - Ear congestion [Unknown]
  - Ear disorder [Unknown]
  - Neuralgia [Unknown]
  - Muscle spasms [Unknown]
  - Ear discomfort [Unknown]
